FAERS Safety Report 19372054 (Version 1)
Quarter: 2021Q2

REPORT INFORMATION
  Report Type: Spontaneous
  Country: DE (occurrence: DE)
  Receive Date: 20210604
  Receipt Date: 20210604
  Transmission Date: 20210717
  Serious: Yes (Other)
  Sender: FDA-Public Use
  Company Number: DE-BAUSCH-BL-2021-018777

PATIENT
  Sex: Female

DRUGS (4)
  1. DEXAPOS COMOD [Suspect]
     Active Substance: DEXAMETHASONE SODIUM METASULFOBENZOATE
     Indication: POSTOPERATIVE CARE
     Route: 065
  2. CORNEREGEL EDO AUGENGEL [Suspect]
     Active Substance: DEXPANTHENOL
     Indication: PROMOTION OF WOUND HEALING
     Dosage: APPLICATION SEVERAL TIMES A DAY?STRENGTH: 0.05 (UNIT UNSPECIFIED)
     Route: 065
  3. OFLOXACIN?OPHTAL SINE 3 MG/ML AUGENTROPFEN [Suspect]
     Active Substance: OFLOXACIN
     Indication: POSTOPERATIVE CARE
     Route: 065
  4. SIC?OPHTAL N SINE [Suspect]
     Active Substance: HYPROMELLOSES
     Indication: DRY EYE
     Route: 065

REACTIONS (6)
  - Ocular discomfort [Not Recovered/Not Resolved]
  - Cataract operation [Unknown]
  - Dry eye [Recovering/Resolving]
  - Visual acuity reduced [Unknown]
  - Vision blurred [Unknown]
  - Product physical consistency issue [Unknown]

NARRATIVE: CASE EVENT DATE: 2021
